FAERS Safety Report 5248613-1 (Version None)
Quarter: 2007Q1

REPORT INFORMATION
  Report Type: 
  Country: None (occurrence: None)
  Receive Date: 20070222
  Receipt Date: 20070206
  Transmission Date: 20070707
  Serious: Yes (Life-Threatening, Other)
  Sender: FDA-Public Use
  Company Number: VER_0043_2007

PATIENT
  Age: 30 Year
  Sex: Male

DRUGS (3)
  1. EPINEPHRINE [Suspect]
     Indication: SWELLING FACE
     Dosage: 0.3 MG PRN SC
     Route: 058
  2. ALLEGRA [Concomitant]
  3. ZYRTEC [Concomitant]

REACTIONS (4)
  - DEVICE LEAKAGE [None]
  - DEVICE MALFUNCTION [None]
  - INCORRECT DOSE ADMINISTERED [None]
  - PHARMACEUTICAL PRODUCT COMPLAINT [None]
